FAERS Safety Report 5925863-X (Version None)
Quarter: 2008Q4

REPORT INFORMATION
  Report Type: 
  Country: None (occurrence: None)
  Receive Date: 20081021
  Receipt Date: 20081010
  Transmission Date: 20090506
  Serious: Yes (Other)
  Sender: FDA-Public Use
  Company Number: US-PFIZER INC-2008071142

PATIENT
  Sex: Female
  Weight: 75 kg

DRUGS (3)
  1. ZYVOX [Suspect]
     Indication: INFECTION
     Dosage: DAILY DOSE:600MG
     Dates: start: 20080719
  2. INSULIN [Concomitant]
     Indication: DIABETES MELLITUS
  3. DRUG, UNSPECIFIED [Concomitant]

REACTIONS (2)
  - ACTIVITIES OF DAILY LIVING IMPAIRED [None]
  - DIARRHOEA [None]
